FAERS Safety Report 25745084 (Version 1)
Quarter: 2025Q3

REPORT INFORMATION
  Report Type: Spontaneous
  Country: EU (occurrence: EU)
  Receive Date: 20250901
  Receipt Date: 20250901
  Transmission Date: 20251021
  Serious: Yes (Other)
  Sender: ACCORD
  Company Number: None

PATIENT
  Age: 80 Year
  Sex: Female
  Weight: 63 kg

DRUGS (12)
  1. QUETIAPINE [Suspect]
     Active Substance: QUETIAPINE
     Indication: Wrong product administered
     Dates: start: 20250630, end: 20250630
  2. GABAPENTIN [Concomitant]
     Active Substance: GABAPENTIN
  3. RISPERDAL [Concomitant]
     Active Substance: RISPERIDONE
  4. OXAZEPAM [Concomitant]
     Active Substance: OXAZEPAM
  5. MIRTAZAPINE [Concomitant]
     Active Substance: MIRTAZAPINE
  6. VENLAFAXINE [Concomitant]
     Active Substance: VENLAFAXINE HYDROCHLORIDE
  7. LEVOTHYROXINE [Concomitant]
     Active Substance: LEVOTHYROXINE
  8. DOLIPRANE [Concomitant]
     Active Substance: ACETAMINOPHEN
  9. MINERAL OIL [Concomitant]
     Active Substance: MINERAL OIL
  10. LACTULOSE [Concomitant]
     Active Substance: LACTULOSE
  11. POTASSIUM BITARTRATE\SODIUM BICARBONATE [Concomitant]
     Active Substance: POTASSIUM BITARTRATE\SODIUM BICARBONATE
  12. CHOLECALCIFEROL [Concomitant]
     Active Substance: CHOLECALCIFEROL

REACTIONS (3)
  - Hypersomnia [Recovered/Resolved]
  - Oxygen saturation decreased [Recovered/Resolved]
  - Wrong product administered [Recovered/Resolved]

NARRATIVE: CASE EVENT DATE: 20250630
